FAERS Safety Report 6919418-8 (Version None)
Quarter: 2010Q3

REPORT INFORMATION
  Report Type: 
  Country: None (occurrence: None)
  Receive Date: 20100811
  Receipt Date: 20100803
  Transmission Date: 20110219
  Serious: Yes (Other)
  Sender: FDA-Public Use
  Company Number: A0875020A

PATIENT
  Age: 52 Year
  Sex: Female

DRUGS (2)
  1. AVANDIA [Suspect]
     Dosage: 2MG PER DAY
     Route: 048
     Dates: start: 19990101, end: 20070801
  2. AVANDARYL [Suspect]
     Route: 048
     Dates: start: 20050101, end: 20060101

REACTIONS (3)
  - ANKLE FRACTURE [None]
  - EYE DISORDER [None]
  - FOOT FRACTURE [None]
